FAERS Safety Report 16964392 (Version 1)
Quarter: 2019Q4

REPORT INFORMATION
  Report Type: Spontaneous
  Country: US (occurrence: US)
  Receive Date: 20190909
  Receipt Date: 20190909
  Transmission Date: 20200122
  Serious: Yes (Hospitalization)
  Sender: FDA-Public Use
  Company Number: None

PATIENT
  Age: 24 Year
  Sex: Female

DRUGS (16)
  1. COMPLETE FORM D5000 [Suspect]
     Active Substance: MINERALS\VITAMINS
     Indication: CYSTIC FIBROSIS
     Route: 048
     Dates: start: 20190405
  2. PREDNISONE. [Concomitant]
     Active Substance: PREDNISONE
  3. FLOVENT [Concomitant]
     Active Substance: FLUTICASONE PROPIONATE
  4. PULMOZYME [Suspect]
     Active Substance: DORNASE ALFA
     Indication: CYSTIC FIBROSIS
     Route: 048
     Dates: start: 20141118
  5. TOBI [Concomitant]
     Active Substance: TOBRAMYCIN
  6. INSULIN LISPRO [Concomitant]
     Active Substance: INSULIN LISPRO
  7. PHYTONADIONE. [Concomitant]
     Active Substance: PHYTONADIONE
  8. PROVENTIL [Concomitant]
     Active Substance: ALBUTEROL
  9. NEURONTIN [Concomitant]
     Active Substance: GABAPENTIN
  10. FLUTICASONE. [Concomitant]
     Active Substance: FLUTICASONE
  11. LANTUS [Concomitant]
     Active Substance: INSULIN GLARGINE
  12. NOVOLOG [Concomitant]
     Active Substance: INSULIN ASPART
  13. SODIUM CHLORIDE. [Concomitant]
     Active Substance: SODIUM CHLORIDE
  14. PANCREALIPASE [Concomitant]
     Active Substance: PANCRELIPASE
  15. PANTOPRAZOLE [Concomitant]
     Active Substance: PANTOPRAZOLE
  16. BUPRENORPHIN [Concomitant]
     Active Substance: BUPRENORPHINE

REACTIONS (3)
  - Lung disorder [None]
  - Pregnancy [None]
  - Maternal exposure during pregnancy [None]
